FAERS Safety Report 4626743-2 (Version None)
Quarter: 2005Q2

REPORT INFORMATION
  Report Type: 
  Country: None (occurrence: None)
  Receive Date: 20050405
  Receipt Date: 20050331
  Transmission Date: 20051028
  Serious: Yes (Other)
  Sender: FDA-Public Use
  Company Number: 200510657DE

PATIENT
  Sex: Male

DRUGS (1)
  1. NAGEL BATRAFEN [Suspect]
     Route: 061

REACTIONS (1)
  - HEPATOCELLULAR DAMAGE [None]
